FAERS Safety Report 4567152-4 (Version None)
Quarter: 2005Q1

REPORT INFORMATION
  Report Type: 
  Country: None (occurrence: None)
  Receive Date: 20050201
  Receipt Date: 20040517
  Transmission Date: 20050727
  Serious: Yes (Death, Life-Threatening)
  Sender: FDA-Public Use
  Company Number: FR-SANOFISYNTHELABO-D01200401745

PATIENT
  Sex: Female
  Weight: 33 kg

DRUGS (22)
  1. SR57746 OR PLACEBO [Suspect]
     Route: 048
     Dates: start: 20040309, end: 20040427
  2. MALTOFER [Concomitant]
     Dosage: UNK
     Route: 065
     Dates: start: 20040323, end: 20040407
  3. NOROXIN [Concomitant]
     Dosage: UNK
     Route: 065
     Dates: start: 20040303, end: 20040306
  4. FORLAX [Concomitant]
     Dosage: UNK
     Route: 065
     Dates: start: 20040324
  5. GRANOCYTE [Concomitant]
     Dosage: UNK
     Route: 065
     Dates: start: 20040325, end: 20040409
  6. PRIMPERAN INJ [Concomitant]
     Dosage: UNK
     Route: 065
     Dates: start: 20040309, end: 20040407
  7. SOLU-MEDROL [Concomitant]
     Dosage: UNK
     Route: 065
     Dates: start: 20040309, end: 20040407
  8. FURANDOTOINE [Concomitant]
     Dosage: UNK
     Route: 065
     Dates: start: 20040304, end: 20040311
  9. ARANESP [Concomitant]
     Dosage: UNK
     Route: 065
     Dates: start: 20040310
  10. TARDYFERON [Concomitant]
     Dosage: UNK
     Route: 065
     Dates: start: 20040310, end: 20040323
  11. IMOVANE [Concomitant]
     Dosage: UNK
     Route: 065
     Dates: start: 20000101, end: 20040323
  12. LACTULOSE [Concomitant]
     Dosage: UNK
     Route: 065
     Dates: start: 20040201, end: 20040323
  13. ACETAMINOPHEN [Concomitant]
     Dosage: UNK
     Route: 065
     Dates: start: 20000101
  14. OMEPRAZOLE [Concomitant]
     Dosage: UNK
     Route: 065
     Dates: start: 20040101
  15. NITRODERM [Concomitant]
     Dosage: UNK
     Route: 065
     Dates: start: 20000101
  16. SPIRONOLACTONE [Concomitant]
     Dosage: UNK
     Route: 065
     Dates: start: 19830101
  17. PRITOR [Concomitant]
     Dosage: UNK
     Route: 065
     Dates: start: 20000101
  18. FLUOROURACIL [Suspect]
     Dosage: 400 MG/M2 AS IV BOLUS THEN 600 MG/M2 AS 22 HOURS CONTINUOUS INFUSION D1-D2 Q2W
     Route: 042
     Dates: start: 20040406, end: 20040407
  19. OXALIPLATIN [Suspect]
     Route: 042
     Dates: start: 20040406, end: 20040406
  20. ZOPHREN [Suspect]
     Dosage: UNK
     Route: 065
     Dates: start: 20040309, end: 20040407
  21. LEUCOVORIN [Suspect]
     Dosage: 200 MG/M2 AS 2 HOURS INFUSION ON D1-D2 Q2W
     Route: 042
     Dates: start: 20040406, end: 20040407
  22. SECTRAL [Concomitant]
     Dosage: UNK
     Route: 065
     Dates: start: 19830101

REACTIONS (5)
  - GENERAL PHYSICAL HEALTH DETERIORATION [None]
  - LEUKOPENIA [None]
  - NEUTROPENIA [None]
  - PNEUMONIA [None]
  - PYREXIA [None]
